FAERS Safety Report 26036085 (Version 1)
Quarter: 2025Q4

REPORT INFORMATION
  Report Type: Spontaneous
  Country: US (occurrence: US)
  Receive Date: 20251112
  Receipt Date: 20251112
  Transmission Date: 20260117
  Serious: Yes (Hospitalization)
  Sender: ANI
  Company Number: US-ANIPHARMA-2025-US-049605

PATIENT
  Sex: Female

DRUGS (1)
  1. CORTICOTROPIN [Suspect]
     Active Substance: CORTICOTROPIN
     Indication: Rheumatoid arthritis
     Dosage: INJECT THE CONTENTS OF ONE SYRINGE (40 UNITS) UNDER THE SKIN EVERY 24 HOURS
     Route: 058

REACTIONS (2)
  - Product administration interrupted [Not Recovered/Not Resolved]
  - Hospitalisation [Unknown]
